FAERS Safety Report 6860354-3 (Version None)
Quarter: 2010Q3

REPORT INFORMATION
  Report Type: 
  Country: None (occurrence: None)
  Receive Date: 20100719
  Receipt Date: 20100719
  Transmission Date: 20110219
  Serious: Yes (Hospitalization)
  Sender: FDA-Public Use
  Company Number: None

PATIENT
  Age: 33 Year
  Sex: Female
  Weight: 68.9467 kg

DRUGS (3)
  1. LOVENOX [Suspect]
     Indication: THROMBOSIS
     Dosage: 40 MG ONCE DAILY SQ
     Route: 058
     Dates: start: 20100101, end: 20100624
  2. ASPIRIN [Concomitant]
  3. GESTICARE DHA [Concomitant]

REACTIONS (5)
  - BRAIN OEDEMA [None]
  - COMPLEX PARTIAL SEIZURES [None]
  - DRUG EXPOSURE DURING PREGNANCY [None]
  - HAEMORRHAGIC STROKE [None]
  - PARTIAL SEIZURES [None]
